FAERS Safety Report 9259583 (Version 2)
Quarter: 2013Q4

REPORT INFORMATION
  Report Type: Spontaneous
  Country: US (occurrence: US)
  Receive Date: 20130429
  Receipt Date: 20131004
  Transmission Date: 20140711
  Serious: Yes (Disabling, Other)
  Sender: FDA-Public Use
  Company Number: US-ASTRAZENECA-2013SE27436

PATIENT
  Age: 53 Year
  Sex: Male

DRUGS (4)
  1. NEXIUM [Suspect]
     Route: 048
  2. PRILOSEC OTC [Suspect]
     Indication: GASTROOESOPHAGEAL REFLUX DISEASE
     Dosage: DAILY
     Route: 048
     Dates: start: 2005, end: 2010
  3. TUMS [Concomitant]
     Dosage: FOR SEVERAL YEARS
  4. MULTIVITAMIN [Concomitant]

REACTIONS (7)
  - Carpal tunnel syndrome [Unknown]
  - Hernia [Unknown]
  - Skin cancer [Unknown]
  - Wrist fracture [Unknown]
  - Osteoporosis [Unknown]
  - Bone disorder [Unknown]
  - Multiple fractures [Unknown]
